FAERS Safety Report 5667064-9 (Version None)
Quarter: 2008Q1

REPORT INFORMATION
  Report Type: 
  Country: None (occurrence: None)
  Receive Date: 20080315
  Receipt Date: 20080214
  Transmission Date: 20080703
  Serious: No
  Sender: FDA-Public Use
  Company Number: US-ABBOTT-08P-163-0433238-00

PATIENT
  Sex: Female
  Weight: 89.438 kg

DRUGS (4)
  1. HUMIRA [Suspect]
     Indication: PSORIATIC ARTHROPATHY
     Route: 058
     Dates: end: 20070501
  2. HUMIRA [Suspect]
     Dates: start: 20080130
  3. CARVEDILOL [Concomitant]
     Indication: HYPERTENSION
     Route: 048
  4. MINOXIDIL [Concomitant]
     Indication: HYPERTENSION
     Dates: start: 20071201

REACTIONS (4)
  - BLOOD PRESSURE INADEQUATELY CONTROLLED [None]
  - HYPERSENSITIVITY [None]
  - PHARYNGOLARYNGEAL PAIN [None]
  - SINUSITIS [None]
